FAERS Safety Report 5480341-X (Version None)
Quarter: 2007Q3

REPORT INFORMATION
  Report Type: 
  Country: None (occurrence: None)
  Receive Date: 20070914
  Receipt Date: 20061103
  Transmission Date: 20080115
  Serious: No
  Sender: FDA-Public Use
  Company Number: 06P-163-0349728-00

PATIENT
  Age: 43 Year
  Sex: Female
  Weight: 77.1115 kg

DRUGS (1)
  1. SYNTHROID [Suspect]
     Indication: HYPOTHYROIDISM
     Dosage: 125 MCG, 1 IN 1 D, PER ORAL
     Route: 048
     Dates: start: 20040701, end: 20061105

REACTIONS (2)
  - ALOPECIA [None]
  - HEADACHE [None]
